FAERS Safety Report 13330589 (Version 1)
Quarter: 2017Q1

REPORT INFORMATION
  Report Type: Spontaneous
  Country: CA (occurrence: CA)
  Receive Date: 20170314
  Receipt Date: 20170314
  Transmission Date: 20170428
  Serious: Yes (Life-Threatening)
  Sender: FDA-Public Use
  Company Number: CA-TEVA-747737ACC

PATIENT
  Age: 34 Year
  Sex: Female

DRUGS (4)
  1. PULMICORT TURBUHALER 200 MCG/DOSE [Concomitant]
  2. BRICANYL TURBUHALER 0.5 MG/AEM [Concomitant]
  3. TEVA-VENLAFAXINE XR [Suspect]
     Active Substance: VENLAFAXINE HYDROCHLORIDE
     Indication: DEPRESSION
  4. AVIANE 21 [Concomitant]
     Active Substance: ETHINYL ESTRADIOL\LEVONORGESTREL

REACTIONS (4)
  - Suicidal ideation [Recovered/Resolved]
  - Crying [Recovered/Resolved]
  - Pain [Recovered/Resolved]
  - Emotional disorder [Recovered/Resolved]
